FAERS Safety Report 8865557 (Version 1)
Quarter: 2012Q4

REPORT INFORMATION
  Report Type: 
  Country: US (occurrence: US)
  Receive Date: 20121024
  Receipt Date: 20121024
  Transmission Date: 20130627
  Serious: No
  Sender: FDA-Public Use
  Company Number: US-AMGEN-USASP2012003568

PATIENT
  Sex: Female

DRUGS (4)
  1. ENBREL [Suspect]
     Indication: PRODUCT USED FOR UNKNOWN INDICATION
     Dosage: 50 mg, qwk
  2. METHOTREXATE [Concomitant]
     Dosage: 2.5 mg, UNK
  3. NEXIUM                             /01479302/ [Concomitant]
     Dosage: 40 mg, UNK
  4. THYROID [Concomitant]
     Dosage: 30 mg, UNK

REACTIONS (3)
  - Injection site bruising [Unknown]
  - Injection site paraesthesia [Unknown]
  - Injection site pain [Unknown]
